FAERS Safety Report 22654473 (Version 1)
Quarter: 2023Q2

REPORT INFORMATION
  Report Type: Report from Study
  Country: US (occurrence: US)
  Receive Date: 20230629
  Receipt Date: 20230629
  Transmission Date: 20230722
  Serious: Yes (Other)
  Sender: FDA-Public Use
  Company Number: US-002147023-NVSC2023US145920

PATIENT
  Sex: Male
  Weight: 107.03 kg

DRUGS (5)
  1. LISINOPRIL [Suspect]
     Active Substance: LISINOPRIL
     Indication: Psoriasis
     Dosage: UNK
     Route: 065
  2. METHYLPREDNISOLONE [Suspect]
     Active Substance: METHYLPREDNISOLONE
     Indication: Psoriasis
     Dosage: UNK
     Route: 065
  3. PREDNISONE [Suspect]
     Active Substance: PREDNISONE
     Indication: Psoriasis
     Dosage: UNK
     Route: 065
  4. TRAMADOL [Suspect]
     Active Substance: TRAMADOL
     Indication: Psoriasis
     Dosage: UNK
     Route: 065
  5. METHOTREXATE [Suspect]
     Active Substance: METHOTREXATE
     Indication: Psoriasis
     Dosage: UNK
     Route: 065

REACTIONS (18)
  - Psoriatic arthropathy [Unknown]
  - Asthenia [Unknown]
  - Arthralgia [Unknown]
  - Sleep disorder [Unknown]
  - Pain in extremity [Unknown]
  - Fatigue [Unknown]
  - Epicondylitis [Unknown]
  - Osteoarthritis [Unknown]
  - Joint space narrowing [Unknown]
  - Vitamin D deficiency [Unknown]
  - Anaemia [Unknown]
  - Hyperlipidaemia [Unknown]
  - Psoriasis [Unknown]
  - Arthropod sting [Unknown]
  - Paraesthesia [Unknown]
  - Hypoaesthesia [Unknown]
  - Product use in unapproved indication [Unknown]
  - Drug ineffective [Unknown]
